FAERS Safety Report 11994677 (Version 1)
Quarter: 2016Q1

REPORT INFORMATION
  Report Type: Spontaneous
  Country: US (occurrence: US)
  Receive Date: 20160203
  Receipt Date: 20160203
  Transmission Date: 20160526
  Serious: No
  Sender: FDA-Public Use
  Company Number: US-UCBSA-2015037155

PATIENT

DRUGS (3)
  1. KEPPRA [Suspect]
     Active Substance: LEVETIRACETAM
     Indication: EPILEPSY
     Dosage: 750 MG, 2X/DAY (BID)
  2. KEPPRA [Suspect]
     Active Substance: LEVETIRACETAM
     Dosage: 1500 MG, 2X/DAY (BID)
  3. LAMICTAL [Concomitant]
     Active Substance: LAMOTRIGINE
     Indication: EPILEPSY
     Dosage: 200 MG, 2X/DAY (BID)

REACTIONS (1)
  - Seizure [Not Recovered/Not Resolved]
